FAERS Safety Report 18848657 (Version 9)
Quarter: 2024Q3

REPORT INFORMATION
  Report Type: Spontaneous
  Country: US (occurrence: US)
  Receive Date: 20210204
  Receipt Date: 20240909
  Transmission Date: 20241016
  Serious: Yes (Other)
  Sender: PFIZER
  Company Number: US-PFIZER INC-2021090621

PATIENT
  Age: 74 Year
  Sex: Female
  Weight: 56.145 kg

DRUGS (3)
  1. PREMPRO [Suspect]
     Active Substance: ESTROGENS, CONJUGATED\MEDROXYPROGESTERONE ACETATE
     Indication: Menopausal disorder
     Dosage: AT LEAST EVERY OTHER DAY
  2. PREMPRO [Suspect]
     Active Substance: ESTROGENS, CONJUGATED\MEDROXYPROGESTERONE ACETATE
     Indication: Menopausal symptoms
     Dosage: 1 EVERY 5TH DAY
  3. PREMPRO [Suspect]
     Active Substance: ESTROGENS, CONJUGATED\MEDROXYPROGESTERONE ACETATE
     Dosage: 1 DF, 1X/DAY
     Route: 048

REACTIONS (13)
  - Knee arthroplasty [Unknown]
  - Headache [Unknown]
  - Dysphonia [Unknown]
  - Nasopharyngitis [Unknown]
  - Sinusitis [Unknown]
  - Feeling abnormal [Unknown]
  - Hypersensitivity [Unknown]
  - Mood altered [Unknown]
  - Oropharyngeal discomfort [Unknown]
  - Hypertension [Unknown]
  - Off label use [Unknown]
  - Product dose omission issue [Unknown]
  - Intentional product misuse [Unknown]
